FAERS Safety Report 6196022-3 (Version None)
Quarter: 2009Q2

REPORT INFORMATION
  Report Type: 
  Country: None (occurrence: None)
  Receive Date: 20090520
  Receipt Date: 20051003
  Transmission Date: 20091009
  Serious: Yes (Hospitalization)
  Sender: FDA-Public Use
  Company Number: NL-ROCHE-599592

PATIENT
  Sex: Male

DRUGS (7)
  1. CAPECITABINE [Suspect]
     Indication: COLORECTAL CANCER
     Dosage: FREQUENCY REPORTED AS 2DD.
     Route: 065
     Dates: start: 20050804
  2. ELOXATIN [Suspect]
     Indication: COLORECTAL CANCER
     Dosage: DOSE REPORTED AS 300MG.
     Route: 042
     Dates: start: 20050804, end: 20050804
  3. ATENOLOL [Concomitant]
  4. METFORMIN HCL [Concomitant]
  5. OLICLINOMEL [Concomitant]
  6. ALLOPURINOL [Concomitant]
  7. ACENOCOUMAROL [Concomitant]

REACTIONS (1)
  - LARGE INTESTINAL OBSTRUCTION [None]
